FAERS Safety Report 4632738-5 (Version None)
Quarter: 2005Q2

REPORT INFORMATION
  Report Type: 
  Country: None (occurrence: None)
  Receive Date: 20050408
  Receipt Date: 20050408
  Transmission Date: 20051028
  Serious: No
  Sender: FDA-Public Use
  Company Number: None

PATIENT
  Weight: 89.8122 kg

DRUGS (2)
  1. ANCEF [Suspect]
     Indication: KNEE ARTHROPLASTY
     Dosage: 1 GRAM ONE TIME INTRAVENOUS
     Route: 042
     Dates: start: 20050407, end: 20050407
  2. ANCEF [Suspect]
     Indication: PROPHYLAXIS
     Dosage: 1 GRAM ONE TIME INTRAVENOUS
     Route: 042
     Dates: start: 20050407, end: 20050407

REACTIONS (1)
  - RASH [None]
